FAERS Safety Report 5254842-3 (Version None)
Quarter: 2007Q1

REPORT INFORMATION
  Report Type: 
  Country: None (occurrence: None)
  Receive Date: 20070302
  Receipt Date: 20070302
  Transmission Date: 20070707
  Serious: Yes (Life-Threatening, Hospitalization)
  Sender: FDA-Public Use
  Company Number: None

PATIENT
  Sex: Female
  Weight: 56 kg

DRUGS (2)
  1. ZOLOFT [Suspect]
     Indication: DEPRESSION
     Dosage: 1250 MG ONCE PO
     Route: 048
     Dates: start: 20070223, end: 20070226
  2. SEROQUEL [Suspect]
     Indication: INSOMNIA
     Dosage: 2000 MG ONCE PO
     Route: 048
     Dates: start: 20070223, end: 20070226

REACTIONS (5)
  - INCORRECT DOSE ADMINISTERED [None]
  - INTENTIONAL SELF-INJURY [None]
  - LOSS OF CONSCIOUSNESS [None]
  - SUICIDE ATTEMPT [None]
  - VOMITING [None]
